FAERS Safety Report 6046568-3 (Version None)
Quarter: 2009Q1

REPORT INFORMATION
  Report Type: 
  Country: None (occurrence: None)
  Receive Date: 20090122
  Receipt Date: 20090112
  Transmission Date: 20090719
  Serious: Yes (Other)
  Sender: FDA-Public Use
  Company Number: PHNU2008DE01135

PATIENT
  Sex: Female

DRUGS (4)
  1. DIOVAN [Suspect]
     Indication: HYPERTENSION
     Dosage: 160 MG, QD
     Route: 048
  2. DIOVAN [Suspect]
     Indication: LEFT VENTRICULAR HYPERTROPHY
  3. HYDROCHLOROTHIAZIDE [Suspect]
     Indication: HYPERTENSION
  4. HYDROCHLOROTHIAZIDE [Suspect]
     Indication: LEFT VENTRICULAR HYPERTROPHY

REACTIONS (4)
  - CUTANEOUS VASCULITIS [None]
  - OPEN WOUND [None]
  - SKIN NECROSIS [None]
  - TOXIC EPIDERMAL NECROLYSIS [None]
